FAERS Safety Report 20821324 (Version 5)
Quarter: 2025Q2

REPORT INFORMATION
  Report Type: Spontaneous
  Country: US (occurrence: US)
  Receive Date: 20220512
  Receipt Date: 20250425
  Transmission Date: 20250716
  Serious: No
  Sender: PFIZER
  Company Number: US-PFIZER INC-202200322792

PATIENT
  Age: 33 Year
  Sex: Female

DRUGS (11)
  1. XELJANZ XR [Suspect]
     Active Substance: TOFACITINIB CITRATE
     Dosage: 11 MG, 1X/DAY (EVERY DAY)
     Route: 048
     Dates: start: 202104
  2. XELJANZ XR [Suspect]
     Active Substance: TOFACITINIB CITRATE
     Dosage: 11 MG, 1X/DAY (EVERY DAY)
     Route: 048
     Dates: start: 2022
  3. XELJANZ XR [Suspect]
     Active Substance: TOFACITINIB CITRATE
     Dosage: 11 MG, 1X/DAY (EVERY DAY)
     Route: 048
     Dates: start: 202502, end: 202502
  4. ACYCLOVIR [Concomitant]
     Active Substance: ACYCLOVIR
  5. ADVIL [Concomitant]
     Active Substance: IBUPROFEN
  6. ALEVE [Concomitant]
     Active Substance: NAPROXEN SODIUM
  7. PAXLOVID [Concomitant]
     Active Substance: NIRMATRELVIR\RITONAVIR
  8. LEVOFLOXACIN [Concomitant]
     Active Substance: LEVOFLOXACIN
  9. PREDNISONE [Concomitant]
     Active Substance: PREDNISONE
  10. BIFIDOBACTERIUM ANIMALIS LACTIS [Concomitant]
     Active Substance: BIFIDOBACTERIUM ANIMALIS LACTIS
  11. GUIATUSS [Concomitant]
     Active Substance: GUAIFENESIN

REACTIONS (7)
  - Condition aggravated [Recovered/Resolved]
  - Pain [Recovered/Resolved]
  - Therapeutic product effect incomplete [Not Recovered/Not Resolved]
  - Illness [Unknown]
  - COVID-19 [Recovered/Resolved]
  - Influenza [Unknown]
  - COVID-19 [Unknown]

NARRATIVE: CASE EVENT DATE: 20220101
